FAERS Safety Report 5105194-0 (Version None)
Quarter: 2006Q3

REPORT INFORMATION
  Report Type: 
  Country: None (occurrence: None)
  Receive Date: 20060911
  Receipt Date: 20060828
  Transmission Date: 20061208
  Serious: Yes (Other)
  Sender: FDA-Public Use
  Company Number: 2006106101

PATIENT
  Age: 71 Year
  Sex: Male
  Weight: 67.1324 kg

DRUGS (9)
  1. LYRICA [Suspect]
     Indication: PAIN
     Dosage: 150 MG (75 MG,2 IN 1 D)
     Dates: start: 20060101, end: 20060826
  2. NORCO [Concomitant]
  3. TRAZODONE HCL [Concomitant]
  4. ZYRTEC [Concomitant]
  5. SOMA [Concomitant]
  6. PAXIL [Concomitant]
  7. TERAZOSIN HCL [Concomitant]
  8. ALEVE [Concomitant]
  9. GLUCOSAMINE W/CHONDROITIN SULFATES (ASCORBIC ACID, CHONDROITIN SULFATE [Concomitant]

REACTIONS (8)
  - ARTHRITIS [None]
  - BLINDNESS [None]
  - DIZZINESS [None]
  - DRUG DOSE OMISSION [None]
  - INCORRECT DOSE ADMINISTERED [None]
  - TRANSURETHRAL PROSTATECTOMY [None]
  - TREATMENT NONCOMPLIANCE [None]
  - WEIGHT INCREASED [None]
